FAERS Safety Report 15018363 (Version 1)
Quarter: 2018Q2

REPORT INFORMATION
  Report Type: Spontaneous
  Country: IT (occurrence: IT)
  Receive Date: 20180615
  Receipt Date: 20180615
  Transmission Date: 20180711
  Serious: Yes (Hospitalization)
  Sender: FDA-Public Use
  Company Number: PHHY2018IT020020

PATIENT
  Age: 42 Year
  Sex: Female
  Weight: 55 kg

DRUGS (3)
  1. PACLITAXEL. [Suspect]
     Active Substance: PACLITAXEL
     Indication: PRODUCT USED FOR UNKNOWN INDICATION
     Dosage: 80 MG, CYCLIC
     Route: 042
     Dates: start: 20170310, end: 20170512
  2. PERJETA [Suspect]
     Active Substance: PERTUZUMAB
     Indication: PRODUCT USED FOR UNKNOWN INDICATION
     Dosage: 420 MG, CYCLIC
     Route: 042
     Dates: start: 20170310, end: 20170512
  3. HERCEPTIN [Suspect]
     Active Substance: TRASTUZUMAB
     Indication: PRODUCT USED FOR UNKNOWN INDICATION
     Dosage: 6 MG, CYCLIC
     Route: 042
     Dates: start: 20170310, end: 20170512

REACTIONS (5)
  - Pleural effusion [Recovered/Resolved with Sequelae]
  - Systolic dysfunction [Recovered/Resolved with Sequelae]
  - Orthopnoea [Recovered/Resolved with Sequelae]
  - Dyspnoea [Recovered/Resolved with Sequelae]
  - Cardiac failure [Recovered/Resolved with Sequelae]

NARRATIVE: CASE EVENT DATE: 20170528
